FAERS Safety Report 4582933-9 (Version None)
Quarter: 2005Q1

REPORT INFORMATION
  Report Type: 
  Country: None (occurrence: None)
  Receive Date: 20050127
  Receipt Date: 20040915
  Transmission Date: 20050727
  Serious: No
  Sender: FDA-Public Use
  Company Number: USA040978384

PATIENT
  Age: 29 Year
  Sex: Female

DRUGS (1)
  1. STRATTERA [Suspect]
     Indication: ATTENTION DEFICIT/HYPERACTIVITY DISORDER
     Dosage: 90 MG
     Dates: start: 20040101

REACTIONS (3)
  - BIPOLAR DISORDER [None]
  - DEPRESSION [None]
  - DISORIENTATION [None]
